FAERS Safety Report 9947774 (Version 1)
Quarter: 2014Q1

REPORT INFORMATION
  Report Type: Report from Study
  Country: US (occurrence: US)
  Receive Date: 20140303
  Receipt Date: 20140303
  Transmission Date: 20141002
  Serious: No
  Sender: FDA-Public Use
  Company Number: US-ABBVIE-13P-163-1062824-00

PATIENT
  Age: 56 Year
  Sex: Female

DRUGS (3)
  1. HUMIRA [Suspect]
     Indication: PSORIASIS
     Dates: start: 20130204
  2. VISTARIL [Concomitant]
     Indication: ANXIETY
     Dosage: 25 MG ONCE EVERY 8 HOURS OR AS REQUIRED
  3. FLEXERIL [Concomitant]
     Indication: MUSCLE SPASMS
     Dosage: 10 MG AS REQUIRED

REACTIONS (3)
  - Staphylococcal infection [Recovering/Resolving]
  - Injection site nodule [Recovering/Resolving]
  - Injection site haemorrhage [Recovering/Resolving]
